FAERS Safety Report 6213345-X (Version None)
Quarter: 2009Q2

REPORT INFORMATION
  Report Type: 
  Country: None (occurrence: None)
  Receive Date: 20090601
  Receipt Date: 20090601
  Transmission Date: 20091009
  Serious: Yes (Other)
  Sender: FDA-Public Use
  Company Number: None

PATIENT
  Sex: Female

DRUGS (1)
  1. LEVETIRACETAM XR [Suspect]
     Indication: EPILEPSY
     Dosage: 1000MG AM PO;  1500MG QHS
     Route: 048

REACTIONS (1)
  - CONVULSION [None]
